FAERS Safety Report 7351591 (Version 5)
Quarter: 2016Q4

REPORT INFORMATION
  Report Type: Report from Study
  Country: JP (occurrence: JP)
  Receive Date: 20100412
  Receipt Date: 20161223
  Transmission Date: 20170207
  Serious: Yes (Hospitalization, Other)
  Sender: FDA-Public Use
  Company Number: PHHY2009JP52590

PATIENT
  Age: 41 Year
  Sex: Female
  Weight: 61 kg

DRUGS (46)
  1. CERTICAN [Suspect]
     Active Substance: EVEROLIMUS
     Dosage: 2.5 MG, QD
     Route: 048
     Dates: start: 20080728, end: 2008
  2. CERTICAN [Suspect]
     Active Substance: EVEROLIMUS
     Dosage: 4.5 MG, QD
     Route: 048
     Dates: start: 20081213, end: 20090218
  3. CELLCEPT [Concomitant]
     Active Substance: MYCOPHENOLATE MOFETIL\MYCOPHENOLATE MOFETIL HYDROCHLORIDE
     Indication: HEART TRANSPLANT
     Dosage: UNK
     Route: 048
     Dates: start: 20080722
  4. PREDNISOLONE. [Concomitant]
     Active Substance: PREDNISOLONE
     Dosage: 7.5 MG, UNK
  5. PREDNISOLONE. [Concomitant]
     Active Substance: PREDNISOLONE
     Dosage: 8 MG, UNK
  6. PRAVASTATIN. [Concomitant]
     Active Substance: PRAVASTATIN
     Indication: PROPHYLAXIS
     Dosage: 20 MG
     Route: 048
     Dates: start: 20050105
  7. AMPICILLIN SODIUM W/SULBACTAM SODIUM [Concomitant]
     Active Substance: AMPICILLIN SODIUM\SULBACTAM SODIUM
     Indication: PRODUCT USED FOR UNKNOWN INDICATION
     Route: 065
  8. CERTICAN [Suspect]
     Active Substance: EVEROLIMUS
     Dosage: 3 MG, QD
     Route: 048
     Dates: start: 20090306, end: 20090326
  9. CERTICAN [Suspect]
     Active Substance: EVEROLIMUS
     Dosage: 4.5 MG, QD
     Route: 048
     Dates: start: 20091002, end: 20091019
  10. PROGRAF [Interacting]
     Active Substance: TACROLIMUS\TACROLIMUS ANHYDROUS
     Dosage: 3 MG, UNK
     Route: 048
     Dates: start: 20090219, end: 20090312
  11. PREDNISOLONE. [Concomitant]
     Active Substance: PREDNISOLONE
     Dosage: 5 MG, UNK
  12. EMPECID [Concomitant]
     Active Substance: CLOTRIMAZOLE
     Indication: PROPHYLAXIS
     Dosage: UNK
     Route: 061
     Dates: start: 20080821, end: 20080910
  13. UNASYN [Concomitant]
     Active Substance: AMPICILLIN SODIUM\SULBACTAM SODIUM
     Indication: PRODUCT USED FOR UNKNOWN INDICATION
     Route: 065
  14. GAMMA GLOBULIN [Concomitant]
     Active Substance: IMMUNE GLOBULIN NOS
     Indication: PRODUCT USED FOR UNKNOWN INDICATION
     Route: 065
  15. TEGRETOL [Suspect]
     Active Substance: CARBAMAZEPINE
     Indication: EPILEPSY
     Dosage: 200 MG, UNK
     Route: 048
     Dates: start: 20061013
  16. PROGRAF [Interacting]
     Active Substance: TACROLIMUS\TACROLIMUS ANHYDROUS
     Dosage: 4.5 MG, UNK
     Route: 048
     Dates: start: 20081128, end: 20081128
  17. PREDNISOLONE. [Concomitant]
     Active Substance: PREDNISOLONE
     Dosage: 2.5 MG, UNK
  18. VALPROATE SODIUM. [Concomitant]
     Active Substance: VALPROATE SODIUM
     Indication: EPILEPSY
  19. FUNGIZONE [Concomitant]
     Active Substance: AMPHOTERICIN B
     Indication: PRODUCT USED FOR UNKNOWN INDICATION
  20. CERTICAN [Suspect]
     Active Substance: EVEROLIMUS
     Dosage: 5.5 MG, QD
     Route: 048
     Dates: start: 20080812, end: 20081126
  21. CERTICAN [Suspect]
     Active Substance: EVEROLIMUS
     Dosage: 5 MG, QD
     Route: 048
     Dates: start: 20081129, end: 20081211
  22. CERTICAN [Suspect]
     Active Substance: EVEROLIMUS
     Dosage: 4 MG, QD
     Route: 048
     Dates: start: 20091020, end: 20091105
  23. PROGRAF [Interacting]
     Active Substance: TACROLIMUS\TACROLIMUS ANHYDROUS
     Dosage: 3.5 MG, UNK
     Route: 048
     Dates: start: 20090313, end: 20090313
  24. PROGRAF [Interacting]
     Active Substance: TACROLIMUS\TACROLIMUS ANHYDROUS
     Dosage: 3 MG, UNK
     Route: 048
     Dates: start: 20090317, end: 20090507
  25. CELLCEPT [Concomitant]
     Active Substance: MYCOPHENOLATE MOFETIL\MYCOPHENOLATE MOFETIL HYDROCHLORIDE
     Dosage: 500 MG, UNK
  26. CERTICAN [Suspect]
     Active Substance: EVEROLIMUS
     Dosage: 5.25 MG, QD
     Route: 048
     Dates: start: 2008, end: 20080811
  27. CERTICAN [Suspect]
     Active Substance: EVEROLIMUS
     Dosage: 3.25 MG, QD
     Route: 048
     Dates: start: 20090305, end: 20090305
  28. DEPAKENE [Concomitant]
     Active Substance: VALPROIC ACID
     Indication: EPILEPSY
     Dosage: 800 MG, UNK
     Route: 048
     Dates: start: 20050813
  29. MEROPEN [Concomitant]
     Active Substance: MEROPENEM
     Indication: PRODUCT USED FOR UNKNOWN INDICATION
     Route: 065
  30. PACEMAKER [Concomitant]
     Indication: PRODUCT USED FOR UNKNOWN INDICATION
     Route: 065
  31. CERTICAN [Suspect]
     Active Substance: EVEROLIMUS
     Dosage: 4 MG, QD
     Route: 048
     Dates: start: 2008, end: 2008
  32. CERTICAN [Suspect]
     Active Substance: EVEROLIMUS
     Dosage: 3.5 MG, QD
     Route: 048
     Dates: start: 20090219, end: 20090304
  33. CERTICAN [Suspect]
     Active Substance: EVEROLIMUS
     Dosage: 3.25 MG, QD
     Route: 048
     Dates: start: 20090327, end: 20090513
  34. PREDNISOLONE. [Concomitant]
     Active Substance: PREDNISOLONE
     Dosage: 10 MG, UNK
  35. CERTICAN [Suspect]
     Active Substance: EVEROLIMUS
     Indication: HEART TRANSPLANT
     Dosage: 1.5 MG, QD
     Route: 048
     Dates: start: 20080722, end: 20080727
  36. CERTICAN [Suspect]
     Active Substance: EVEROLIMUS
     Dosage: 4.75 MG, QD
     Route: 048
     Dates: start: 20081212, end: 20081212
  37. CERTICAN [Suspect]
     Active Substance: EVEROLIMUS
     Dosage: 3.5 MG, QD
     Route: 048
     Dates: start: 20090514, end: 20091001
  38. CELLCEPT [Concomitant]
     Active Substance: MYCOPHENOLATE MOFETIL\MYCOPHENOLATE MOFETIL HYDROCHLORIDE
     Dosage: 1750 MG, UNK
     Route: 048
     Dates: end: 20081126
  39. CERTICAN [Suspect]
     Active Substance: EVEROLIMUS
     Dosage: 5.25 MG, QD
     Route: 048
     Dates: start: 20081127, end: 20081128
  40. CERTICAN [Suspect]
     Active Substance: EVEROLIMUS
     Dosage: 4.25 MG, QD
     Route: 048
     Dates: start: 20091106, end: 20091113
  41. PROGRAF [Interacting]
     Active Substance: TACROLIMUS\TACROLIMUS ANHYDROUS
     Indication: HEART TRANSPLANT
     Dosage: 5.2 MG, UNK
     Route: 048
     Dates: end: 20080921
  42. PROGRAF [Interacting]
     Active Substance: TACROLIMUS\TACROLIMUS ANHYDROUS
     Dosage: 5.0 MG, UNK
     Route: 048
     Dates: start: 20080922, end: 20081127
  43. PROGRAF [Interacting]
     Active Substance: TACROLIMUS\TACROLIMUS ANHYDROUS
     Dosage: 4.0 MG, UNK
     Route: 048
     Dates: start: 20081129, end: 20090218
  44. PREDNISOLONE. [Concomitant]
     Active Substance: PREDNISOLONE
     Indication: HEART TRANSPLANT
     Dosage: 15 MG, UNK
     Dates: start: 20080728
  45. EMPECID [Concomitant]
     Active Substance: CLOTRIMAZOLE
     Indication: PRODUCT USED FOR UNKNOWN INDICATION
     Route: 065
  46. NEUTROGIN [Concomitant]
     Active Substance: LENOGRASTIM
     Indication: PRODUCT USED FOR UNKNOWN INDICATION
     Route: 065

REACTIONS (20)
  - Syncope [Recovering/Resolving]
  - Lymphadenopathy [Unknown]
  - Stomatitis [Recovering/Resolving]
  - Anogenital warts [Not Recovered/Not Resolved]
  - Granulocytopenia [Recovered/Resolved]
  - Pharyngitis [Recovered/Resolved]
  - Immunosuppressant drug level increased [Unknown]
  - Pneumonia bacterial [Recovering/Resolving]
  - Gastrointestinal disorder [Unknown]
  - Immunosuppressant drug level decreased [Unknown]
  - Glucose tolerance impaired [Not Recovered/Not Resolved]
  - Coronary artery disease [Unknown]
  - Depression [Unknown]
  - Stomatitis [Recovering/Resolving]
  - Epstein-Barr virus antigen positive [Unknown]
  - Drug interaction [Unknown]
  - Granulocytopenia [Recovering/Resolving]
  - Enteritis [Unknown]
  - Abdominal pain [Recovering/Resolving]
  - Drug level decreased [Unknown]

NARRATIVE: CASE EVENT DATE: 20080804
